FAERS Safety Report 9166214 (Version 2)
Quarter: 2013Q3

REPORT INFORMATION
  Report Type: Report from Study
  Country: RU (occurrence: RU)
  Receive Date: 20130315
  Receipt Date: 20130703
  Transmission Date: 20140515
  Serious: Yes (Other)
  Sender: FDA-Public Use
  Company Number: RU-ROCHE-1202522

PATIENT
  Age: 60 Year
  Sex: Female
  Weight: 80 kg

DRUGS (5)
  1. AVASTIN [Suspect]
     Indication: COLON CANCER METASTATIC
     Route: 065
     Dates: start: 20120927
  2. MITOMYCIN [Concomitant]
     Indication: COLON CANCER METASTATIC
     Route: 065
     Dates: start: 20130226, end: 20130618
  3. 5-FLUOROURACIL [Concomitant]
     Indication: COLON CANCER METASTATIC
     Dosage: DAY 1-5
     Route: 065
     Dates: start: 20130618
  4. OXALIPLATIN [Concomitant]
     Indication: COLON CANCER METASTATIC
     Dosage: DAY 1
     Route: 065
     Dates: start: 20130618
  5. IRINOTECAN [Concomitant]
     Indication: COLON CANCER METASTATIC
     Route: 065
     Dates: start: 20120927, end: 20130226

REACTIONS (1)
  - Disease progression [Not Recovered/Not Resolved]
